FAERS Safety Report 5668027-X (Version None)
Quarter: 2008Q1

REPORT INFORMATION
  Report Type: 
  Country: None (occurrence: None)
  Receive Date: 20080315
  Receipt Date: 20080213
  Transmission Date: 20080703
  Serious: No
  Sender: FDA-Public Use
  Company Number: US-ABBOTT-08P-163-0438348-00

PATIENT
  Sex: Male
  Weight: 116.22 kg

DRUGS (7)
  1. HUMIRA [Suspect]
     Indication: RHEUMATOID ARTHRITIS
     Route: 058
     Dates: start: 20050801
  2. HUMIRA [Suspect]
     Route: 058
     Dates: start: 20050201, end: 20050801
  3. METHOTREXATE [Concomitant]
     Indication: RHEUMATOID ARTHRITIS
  4. PREDNISONE [Concomitant]
     Indication: RHEUMATOID ARTHRITIS
  5. METAGLIP [Concomitant]
     Indication: DIABETES MELLITUS
  6. DIOVAN HCT [Concomitant]
     Indication: HYPERTENSION
  7. THEOPHYLLINE [Concomitant]
     Indication: DRUG USE FOR UNKNOWN INDICATION

REACTIONS (2)
  - CARDIOMEGALY [None]
  - PULMONARY OEDEMA [None]
